FAERS Safety Report 25084084 (Version 1)
Quarter: 2025Q1

REPORT INFORMATION
  Report Type: Spontaneous
  Country: US (occurrence: None)
  Receive Date: 20250315
  Receipt Date: 20250315
  Transmission Date: 20250409
  Serious: Yes (Death)
  Sender: FDA-CTU
  Company Number: None

PATIENT
  Age: 69 Year
  Sex: Male

DRUGS (1)
  1. TADALAFIL [Suspect]
     Active Substance: TADALAFIL
     Indication: Pulmonary hypertension
     Dosage: FREQUENCY : DAILY;?
     Route: 048
     Dates: start: 20240418, end: 20250131

REACTIONS (5)
  - Acute kidney injury [None]
  - Hyperkalaemia [None]
  - Deep vein thrombosis [None]
  - Thrombosis [None]
  - General physical health deterioration [None]

NARRATIVE: CASE EVENT DATE: 20250130
